FAERS Safety Report 10385209 (Version 1)
Quarter: 2014Q3

REPORT INFORMATION
  Report Type: Spontaneous
  Country: US (occurrence: US)
  Receive Date: 20140814
  Receipt Date: 20140814
  Transmission Date: 20150326
  Serious: No
  Sender: FDA-Public Use
  Company Number: US-VIVUS-2014V1000264

PATIENT
  Age: 59 Year
  Sex: Female

DRUGS (6)
  1. CLONIDINE. [Concomitant]
     Active Substance: CLONIDINE
     Indication: MENOPAUSAL SYMPTOMS
  2. SIMVASTATIN. [Concomitant]
     Active Substance: SIMVASTATIN
     Indication: BLOOD CHOLESTEROL INCREASED
  3. PRANDIN [Concomitant]
     Active Substance: REPAGLINIDE
     Indication: TYPE 2 DIABETES MELLITUS
  4. QSYMIA [Suspect]
     Active Substance: PHENTERMINE HYDROCHLORIDE\TOPIRAMATE
     Indication: PRODUCT USED FOR UNKNOWN INDICATION
     Dates: start: 201403
  5. HCTZ [Concomitant]
     Active Substance: HYDROCHLOROTHIAZIDE
     Indication: HYPERTENSION
  6. QSYMIA [Suspect]
     Active Substance: PHENTERMINE HYDROCHLORIDE\TOPIRAMATE
     Indication: PRODUCT USED FOR UNKNOWN INDICATION
     Route: 048
     Dates: start: 201404

REACTIONS (2)
  - Nervousness [Recovered/Resolved]
  - Drug dose omission [Recovered/Resolved]

NARRATIVE: CASE EVENT DATE: 201404
